FAERS Safety Report 4987421-3 (Version None)
Quarter: 2006Q2

REPORT INFORMATION
  Report Type: 
  Country: None (occurrence: None)
  Receive Date: 20060501
  Receipt Date: 20050919
  Transmission Date: 20061013
  Serious: Yes (Disabling, Other)
  Sender: FDA-Public Use
  Company Number: US-MERCK-0509USA02652

PATIENT
  Age: 57 Year
  Sex: Male
  Weight: 89 kg

DRUGS (3)
  1. VIOXX [Suspect]
     Indication: ARTHRITIS
     Route: 048
     Dates: start: 20010101, end: 20020101
  2. VASOTEC [Concomitant]
     Route: 048
  3. ZOCOR [Concomitant]
     Route: 048

REACTIONS (13)
  - ARRHYTHMIA [None]
  - CARDIAC FAILURE [None]
  - CEREBROVASCULAR ACCIDENT [None]
  - CHEST PAIN [None]
  - HEPATOCELLULAR DAMAGE [None]
  - HERNIA [None]
  - HYPERTENSION [None]
  - JOINT INJURY [None]
  - MYOCARDIAL INFARCTION [None]
  - POLYTRAUMATISM [None]
  - RENAL DISORDER [None]
  - THROMBOSIS [None]
  - ULCER HAEMORRHAGE [None]
